FAERS Safety Report 9768420 (Version 2)
Quarter: 2014Q2

REPORT INFORMATION
  Report Type: Spontaneous
  Country: US (occurrence: US)
  Receive Date: 20131217
  Receipt Date: 20140416
  Transmission Date: 20141212
  Serious: Yes (Other)
  Sender: FDA-Public Use
  Company Number: US-JNJFOC-20131207557

PATIENT
  Age: 55 Year
  Sex: Female
  Weight: 72.58 kg

DRUGS (12)
  1. INVOKANA [Suspect]
     Indication: DIABETES MELLITUS
     Route: 048
     Dates: start: 20130810, end: 20130812
  2. FLEXERIL [Concomitant]
     Indication: MUSCLE SPASMS
     Route: 048
  3. ALBUTEROL [Concomitant]
  4. COLECALCIFEROL [Concomitant]
     Route: 048
  5. VASOTEC [Concomitant]
     Route: 048
  6. PROZAC [Concomitant]
     Route: 048
  7. LANTUS [Concomitant]
     Route: 050
  8. LANTUS [Concomitant]
     Route: 050
  9. SYNTHROID [Concomitant]
     Route: 048
  10. GLUCOPHAGE [Concomitant]
     Indication: DIABETES MELLITUS
     Route: 048
  11. PRAVACHOL [Concomitant]
     Route: 048
  12. JANUVIA [Concomitant]
     Indication: DIABETES MELLITUS
     Route: 048

REACTIONS (5)
  - Paraesthesia [Not Recovered/Not Resolved]
  - Hypoaesthesia [Not Recovered/Not Resolved]
  - Swelling face [Unknown]
  - Erythema [Unknown]
  - Facial pain [Unknown]
